FAERS Safety Report 8454766-4 (Version None)
Quarter: 2012Q2

REPORT INFORMATION
  Report Type: 
  Country: None (occurrence: None)
  Receive Date: 20120615
  Receipt Date: 20120615
  Transmission Date: 20120825
  Serious: Yes (Other)
  Sender: FDA-Public Use
  Company Number: None

PATIENT
  Age: 68 Year
  Sex: Female
  Weight: 66.2252 kg

DRUGS (1)
  1. PREDNISONE [Suspect]
     Indication: HYPERSENSITIVITY
     Dosage: 1 TABLET TWICE A DAY THEN ONCE
     Dates: start: 20120530, end: 20120603

REACTIONS (5)
  - ASTHENIA [None]
  - FLUSHING [None]
  - FATIGUE [None]
  - PALPITATIONS [None]
  - BLOOD PRESSURE INCREASED [None]
